FAERS Safety Report 10665464 (Version 5)
Quarter: 2015Q4

REPORT INFORMATION
  Report Type: Report from Study
  Country: PT (occurrence: PT)
  Receive Date: 20141219
  Receipt Date: 20151028
  Transmission Date: 20160304
  Serious: Yes (Hospitalization, Other)
  Sender: FDA-Public Use
  Company Number: PHHY2014PT157834

PATIENT
  Age: 52 Year
  Sex: Female

DRUGS (1)
  1. EXTAVIA [Suspect]
     Active Substance: INTERFERON BETA-1B
     Indication: MULTIPLE SCLEROSIS
     Dosage: 250 MCG/ML, QOD
     Route: 058
     Dates: start: 20130501

REACTIONS (22)
  - Anxiety [Not Recovered/Not Resolved]
  - Urinary tract infection [Recovered/Resolved]
  - Urinary tract infection [Recovered/Resolved]
  - Abasia [Unknown]
  - Urinary retention [Recovered/Resolved]
  - Vomiting [Recovered/Resolved]
  - Urine odour abnormal [Unknown]
  - Renal pain [Unknown]
  - Hypertension [Recovered/Resolved]
  - Pyrexia [Unknown]
  - Pollakiuria [Unknown]
  - Tremor [Unknown]
  - Urinary incontinence [Unknown]
  - Injection site mass [Not Recovered/Not Resolved]
  - Insomnia [Not Recovered/Not Resolved]
  - Kidney infection [Recovered/Resolved]
  - Pyrexia [Recovered/Resolved]
  - Bladder discomfort [Unknown]
  - Uterine mass [Unknown]
  - Vaginal haemorrhage [Not Recovered/Not Resolved]
  - Depressed mood [Not Recovered/Not Resolved]
  - Injection site reaction [Unknown]

NARRATIVE: CASE EVENT DATE: 20141125
